FAERS Safety Report 4842568-7 (Version None)
Quarter: 2005Q4

REPORT INFORMATION
  Report Type: 
  Country: None (occurrence: None)
  Receive Date: 20051129
  Receipt Date: 20051116
  Transmission Date: 20060501
  Serious: Yes (Hospitalization)
  Sender: FDA-Public Use
  Company Number: US-2005-009601

PATIENT
  Age: 54 Year
  Sex: Female
  Weight: 52 kg

DRUGS (11)
  1. BETASERON [Suspect]
     Indication: MULTIPLE SCLEROSIS RELAPSE
     Dosage: 8 MIU, EVERY 2 D, SUBCUTANEOUS
     Route: 058
     Dates: start: 20000323, end: 20041111
  2. BETASERON [Suspect]
     Indication: MULTIPLE SCLEROSIS RELAPSE
     Dosage: 8 MIU, EVERY 2 D, SUBCUTANEOUS
     Route: 058
     Dates: start: 20050401
  3. NOVANTRONE [Suspect]
     Indication: MULTIPLE SCLEROSIS RELAPSE
  4. METFORMIN HCL [Concomitant]
  5. GLIPIZIDE [Concomitant]
  6. TOPROL-XL [Concomitant]
  7. AVANDIA [Concomitant]
  8. LISINOPRIL [Concomitant]
  9. NORVASC [Concomitant]
  10. NAPROXEN [Concomitant]
  11. EXTRA STRENGTH TYLENOL [Concomitant]

REACTIONS (1)
  - CARDIAC DISORDER [None]
